FAERS Safety Report 23064664 (Version 1)
Quarter: 2023Q4

REPORT INFORMATION
  Report Type: Spontaneous
  Country: US (occurrence: None)
  Receive Date: 20231013
  Receipt Date: 20231013
  Transmission Date: 20240110
  Serious: Yes (Death)
  Sender: FDA-Public Use
  Company Number: None

PATIENT
  Age: 78 Year
  Sex: Female
  Weight: 56 kg

DRUGS (1)
  1. YESCARTA [Suspect]
     Active Substance: AXICABTAGENE CILOLEUCEL
     Indication: Diffuse large B-cell lymphoma
     Dosage: OTHER FREQUENCY : ONCE;?
     Route: 041
     Dates: start: 20230911, end: 20230911

REACTIONS (12)
  - Syncope [None]
  - Immune effector cell-associated neurotoxicity syndrome [None]
  - Hypoxia [None]
  - Distributive shock [None]
  - Multiple organ dysfunction syndrome [None]
  - Lactic acidosis [None]
  - Acidosis [None]
  - Renal failure [None]
  - Intestinal ischaemia [None]
  - Respiratory failure [None]
  - Pulse absent [None]
  - Cardio-respiratory arrest [None]

NARRATIVE: CASE EVENT DATE: 20230918
